FAERS Safety Report 5232388-6 (Version None)
Quarter: 2007Q1

REPORT INFORMATION
  Report Type: 
  Country: None (occurrence: None)
  Receive Date: 20070205
  Receipt Date: 20070129
  Transmission Date: 20070707
  Serious: Yes (Death)
  Sender: FDA-Public Use
  Company Number: 2007-00209

PATIENT
  Age: 64 Year
  Sex: 0

DRUGS (6)
  1. VELCADE [Suspect]
     Indication: MULTIPLE MYELOMA
     Dates: start: 20070122, end: 20070125
  2. ADRIAMYCIN PFS [Suspect]
     Indication: MULTIPLE MYELOMA
     Dates: start: 20070122, end: 20070122
  3. DEXAMETHASONE [Suspect]
     Indication: MULTIPLE MYELOMA
     Dates: start: 20070122, end: 20070125
  4. BACTRIMEL (SULFAMETHOXAZOLE, TRIMETHOPRIM) [Concomitant]
  5. VALACYCLOVIR HCL [Concomitant]
  6. DURAGESIC-100 [Concomitant]

REACTIONS (1)
  - SUDDEN DEATH [None]
